FAERS Safety Report 10083415 (Version 2)
Quarter: 2014Q2

REPORT INFORMATION
  Report Type: Spontaneous
  Country: DE (occurrence: DE)
  Receive Date: 20140417
  Receipt Date: 20140417
  Transmission Date: 20141212
  Serious: Yes (Life-Threatening, Hospitalization, Other)
  Sender: FDA-Public Use
  Company Number: DE-ACCORD-023069

PATIENT
  Age: 45 Year
  Sex: Male

DRUGS (1)
  1. GEMCITABINE/GEMCITABINE HYDROCHLORIDE [Suspect]
     Indication: SMALL INTESTINE CARCINOMA METASTATIC
     Dosage: ON DAYS 1, 8 AND 15 OF EACH CYCLE

REACTIONS (3)
  - Off label use [Unknown]
  - Renal failure [Recovering/Resolving]
  - Thrombotic microangiopathy [Recovering/Resolving]
